FAERS Safety Report 5166381-9 (Version None)
Quarter: 2006Q4

REPORT INFORMATION
  Report Type: 
  Country: None (occurrence: None)
  Receive Date: 20061129
  Receipt Date: 20061120
  Transmission Date: 20070319
  Serious: Yes (Other)
  Sender: FDA-Public Use
  Company Number: TPA2006A01558

PATIENT
  Age: 65 Year
  Sex: Male
  Weight: 91.6266 kg

DRUGS (12)
  1. ACTOPLUS MET [Suspect]
     Indication: DIABETES MELLITUS NON-INSULIN-DEPENDENT
     Dosage: 15/500 MG, QAM, PER ORAL
     Route: 048
     Dates: start: 20060814, end: 20060824
  2. ACTOS [Suspect]
     Indication: DIABETES MELLITUS NON-INSULIN-DEPENDENT
     Dosage: SEE IMAGE
     Route: 048
     Dates: start: 20050101, end: 20050101
  3. ACTOS [Suspect]
     Indication: DIABETES MELLITUS NON-INSULIN-DEPENDENT
     Dosage: SEE IMAGE
     Route: 048
     Dates: start: 20050101, end: 20060814
  4. ACTOS [Suspect]
     Indication: DIABETES MELLITUS NON-INSULIN-DEPENDENT
     Dosage: SEE IMAGE
     Route: 048
     Dates: start: 20060101
  5. FLOMAX [Concomitant]
  6. FINASTERIDE [Concomitant]
  7. LOVASTATIN [Concomitant]
  8. LISINOPRIL [Concomitant]
  9. CALCIUM CITRATE PLUS D (CALCIUM CITRATE, VITAMIN S NOS) [Concomitant]
  10. GLUCOSAMINE (GLUCOSAMINE) [Concomitant]
  11. DOCUSATE SODIUM (DOCUSATE SODIUM) [Concomitant]
  12. NAPROXEN SODIUM [Concomitant]

REACTIONS (2)
  - NEPHROLITHIASIS [None]
  - WEIGHT INCREASED [None]
